FAERS Safety Report 25159741 (Version 1)
Quarter: 2025Q2

REPORT INFORMATION
  Report Type: Spontaneous
  Country: US (occurrence: US)
  Receive Date: 20250404
  Receipt Date: 20250404
  Transmission Date: 20250717
  Serious: Yes (Hospitalization, Other)
  Sender: RANBAXY
  Company Number: US-SUN PHARMACEUTICAL INDUSTRIES LTD-2025R1-501980

PATIENT
  Age: 84 Year
  Sex: Female

DRUGS (2)
  1. DIGOXIN [Interacting]
     Active Substance: DIGOXIN
     Indication: Atrial fibrillation
     Route: 065
  2. POSACONAZOLE [Interacting]
     Active Substance: POSACONAZOLE
     Indication: Antifungal prophylaxis
     Route: 065

REACTIONS (4)
  - Drug interaction [Unknown]
  - Drug level above therapeutic [Unknown]
  - Sinus bradycardia [Recovering/Resolving]
  - Atrioventricular block second degree [Recovering/Resolving]
